FAERS Safety Report 9911616 (Version 1)
Quarter: 2014Q1

REPORT INFORMATION
  Report Type: Report from Study
  Country: CA (occurrence: CA)
  Receive Date: 20140219
  Receipt Date: 20140219
  Transmission Date: 20141002
  Serious: Yes (Hospitalization)
  Sender: FDA-Public Use
  Company Number: PHHY2014CA019312

PATIENT
  Sex: Female

DRUGS (5)
  1. ACLASTA [Suspect]
     Indication: OSTEOPOROSIS
     Dosage: UNK
     Route: 042
     Dates: start: 20081111
  2. ACLASTA [Suspect]
     Dosage: UNK
     Route: 042
     Dates: start: 20091111
  3. ACLASTA [Suspect]
     Dosage: UNK
     Route: 042
     Dates: start: 20110107
  4. ACLASTA [Suspect]
     Dosage: UNK
     Route: 042
     Dates: start: 20120113
  5. ACLASTA [Suspect]
     Dosage: UNK
     Route: 042
     Dates: start: 20130116

REACTIONS (2)
  - Lung neoplasm malignant [Unknown]
  - Carbon dioxide increased [Unknown]
